FAERS Safety Report 11190380 (Version 3)
Quarter: 2015Q3

REPORT INFORMATION
  Report Type: Spontaneous
  Country: US (occurrence: US)
  Receive Date: 20150615
  Receipt Date: 20150820
  Transmission Date: 20151125
  Serious: No
  Sender: FDA-Public Use
  Company Number: US-PFIZER INC-2015195444

PATIENT
  Age: 51 Year
  Sex: Male
  Weight: 73 kg

DRUGS (4)
  1. SUTENT [Suspect]
     Active Substance: SUNITINIB MALATE
     Dosage: 50 MG DAILY FOR 28 DAYS ON / 14 DAYS OFF
  2. SUTENT [Suspect]
     Active Substance: SUNITINIB MALATE
     Dosage: 50 MG DAILY FOR 4 WEEKS ON AND 4 WEEKS OFF
     Route: 048
     Dates: start: 201506, end: 20150802
  3. SUTENT [Suspect]
     Active Substance: SUNITINIB MALATE
     Dosage: 50 MG, 1X/DAY
     Route: 048
     Dates: start: 20150803
  4. SUTENT [Suspect]
     Active Substance: SUNITINIB MALATE
     Indication: METASTATIC RENAL CELL CARCINOMA
     Dosage: 50 MG FOR 2 WEEKS ON / 2 WEEKS OFF
     Dates: start: 20150518

REACTIONS (15)
  - Fatigue [Not Recovered/Not Resolved]
  - Hunger [Unknown]
  - Insomnia [Not Recovered/Not Resolved]
  - Dysgeusia [Not Recovered/Not Resolved]
  - Feeling jittery [Not Recovered/Not Resolved]
  - Malaise [Unknown]
  - Muscle twitching [Unknown]
  - Blood pressure increased [Not Recovered/Not Resolved]
  - Weight increased [Unknown]
  - Restlessness [Not Recovered/Not Resolved]
  - Glossodynia [Not Recovered/Not Resolved]
  - Oral pain [Unknown]
  - Headache [Not Recovered/Not Resolved]
  - Oral discomfort [Unknown]
  - Irritability [Not Recovered/Not Resolved]

NARRATIVE: CASE EVENT DATE: 201505
